FAERS Safety Report 8274979-4 (Version None)
Quarter: 2012Q2

REPORT INFORMATION
  Report Type: 
  Country: None (occurrence: None)
  Receive Date: 20120411
  Receipt Date: 20120402
  Transmission Date: 20120825
  Serious: Yes (Other)
  Sender: FDA-Public Use
  Company Number: US-ASTRAZENECA-2004UW12577

PATIENT
  Age: 63 Year
  Sex: Female
  Weight: 61.2 kg

DRUGS (8)
  1. DOXEPIN HCL [Concomitant]
  2. CRESTOR [Suspect]
     Indication: BLOOD CHOLESTEROL INCREASED
     Route: 048
  3. NEXIUM [Suspect]
     Route: 048
  4. EFFEXOR [Concomitant]
  5. TOPAMAX [Concomitant]
  6. XANAX [Concomitant]
  7. PRILOSEC [Concomitant]
  8. TOPROL-XL [Concomitant]

REACTIONS (7)
  - ALOPECIA [None]
  - COUGH [None]
  - GASTROOESOPHAGEAL REFLUX DISEASE [None]
  - DIAPHRAGMATIC HERNIA [None]
  - BRONCHITIS [None]
  - PNEUMONIA [None]
  - TRICHORRHEXIS [None]
